FAERS Safety Report 8071537-1 (Version None)
Quarter: 2012Q1

REPORT INFORMATION
  Report Type: 
  Country: None (occurrence: None)
  Receive Date: 20120125
  Receipt Date: 20120120
  Transmission Date: 20120608
  Serious: Yes (Other)
  Sender: FDA-Public Use
  Company Number: US-B.I. PHARMACEUTICALS,INC./RIDGEFIELD-2012-BP-00323PF

PATIENT
  Sex: Male
  Weight: 95.24 kg

DRUGS (5)
  1. CYCLOBENZAPRINE [Concomitant]
     Indication: MUSCLE DISORDER
  2. LIPITOR [Suspect]
     Indication: BLOOD CHOLESTEROL INCREASED
     Dosage: 40 MG
     Route: 048
  3. LYRICA [Suspect]
     Indication: NERVOUS SYSTEM DISORDER
     Dosage: 150 MG
     Route: 048
     Dates: start: 20111201
  4. HYDROCODONE BITARTRATE [Concomitant]
     Indication: PAIN
  5. SPIRIVA [Suspect]
     Route: 055

REACTIONS (6)
  - PAIN [None]
  - CHRONIC OBSTRUCTIVE PULMONARY DISEASE [None]
  - HYPERTENSION [None]
  - NERVE INJURY [None]
  - BACK DISORDER [None]
  - NERVOUS SYSTEM DISORDER [None]
